FAERS Safety Report 4297293-0 (Version None)
Quarter: 2004Q1

REPORT INFORMATION
  Report Type: 
  Country: None (occurrence: None)
  Receive Date: 20040213
  Receipt Date: 20040204
  Transmission Date: 20041129
  Serious: Yes (Life-Threatening)
  Sender: FDA-Public Use
  Company Number: 2003175288GB

PATIENT
  Age: 66 Year
  Sex: Male
  Weight: 101 kg

DRUGS (6)
  1. ZYVOX [Suspect]
     Indication: INFECTION
     Dosage: ORAL
     Route: 048
     Dates: end: 20030720
  2. WARFARIN SODIUM [Suspect]
     Dosage: 8 MG,DAILY,UNK
     Route: 065
  3. ATENOLOL [Concomitant]
  4. CO-AMILOFRUSE [Concomitant]
  5. TEMAZEPAM [Concomitant]
  6. THYROXIN (LEVOTHYROXINE SODIUM) [Concomitant]

REACTIONS (6)
  - ABDOMINAL PAIN [None]
  - DRUG INTERACTION [None]
  - ECCHYMOSIS [None]
  - INTERNATIONAL NORMALISED RATIO INCREASED [None]
  - NAUSEA [None]
  - PAIN IN EXTREMITY [None]
